FAERS Safety Report 8626011-8 (Version None)
Quarter: 2012Q3

REPORT INFORMATION
  Report Type: 
  Country: None (occurrence: None)
  Receive Date: 20120827
  Receipt Date: 20120725
  Transmission Date: 20120928
  Serious: Yes (Congenital Anomaly)
  Sender: FDA-Public Use
  Company Number: JP-009507513-1207JPN008164

PATIENT

DRUGS (2)
  1. DIAZOXIDE [Suspect]
     Indication: HYPOGLYCAEMIA
     Dosage: 9 MG/KG, QD
     Route: 048
     Dates: start: 20090910, end: 20090914
  2. DIAZOXIDE [Suspect]
     Dosage: 15 MG/KG, QD
     Route: 048
     Dates: start: 20090915, end: 20091110

REACTIONS (1)
  - CARDIAC FAILURE [None]
